FAERS Safety Report 20570390 (Version 1)
Quarter: 2022Q1

REPORT INFORMATION
  Report Type: Spontaneous
  Country: US (occurrence: US)
  Receive Date: 20220309
  Receipt Date: 20220309
  Transmission Date: 20220423
  Serious: Yes (Other)
  Sender: FDA-Public Use
  Company Number: US-SA-2022SA074340

PATIENT
  Age: 61 Year
  Sex: Female
  Weight: 81.633 kg

DRUGS (22)
  1. DUPIXENT [Suspect]
     Active Substance: DUPILUMAB
     Indication: Eosinophil count increased
     Route: 058
  2. HUMIRA [Suspect]
     Active Substance: ADALIMUMAB
     Indication: Psoriatic arthropathy
     Dosage: 40 MG, QOW
     Route: 058
     Dates: start: 202111, end: 2021
  3. HUMIRA [Suspect]
     Active Substance: ADALIMUMAB
     Indication: Gastritis erosive
     Dosage: 40 MG, QW
     Route: 058
     Dates: start: 202112
  4. HUMIRA [Suspect]
     Active Substance: ADALIMUMAB
     Indication: Oesophageal motility disorder
  5. COVID-19 VACCINE [Concomitant]
     Indication: COVID-19 immunisation
     Dosage: UNK; 1 IN 1 ONCE
     Route: 030
     Dates: start: 20210331, end: 20210331
  6. COVID-19 VACCINE [Concomitant]
     Dosage: UNK; 1 IN 1 ONCE
     Route: 030
     Dates: start: 20210507, end: 20210507
  7. COVID-19 VACCINE [Concomitant]
     Dosage: UNK; 1 IN 1 ONCE
     Route: 030
     Dates: start: 20211007, end: 20211007
  8. ALPRAZOLAM [Concomitant]
     Active Substance: ALPRAZOLAM
     Indication: Anxiety
     Dosage: 1 MG, BID
  9. TRINTELLIX [Concomitant]
     Active Substance: VORTIOXETINE HYDROBROMIDE
     Indication: Depression
     Dosage: 20 MG, QD
  10. TRINTELLIX [Concomitant]
     Active Substance: VORTIOXETINE HYDROBROMIDE
     Indication: Anxiety
  11. OTEZLA [Concomitant]
     Active Substance: APREMILAST
     Indication: Psoriatic arthropathy
     Dosage: 30 MG, BID
  12. MIRTAZAPINE [Concomitant]
     Active Substance: MIRTAZAPINE
     Indication: Depression
     Dosage: 15 MG, QD
  13. GABAPENTIN [Concomitant]
     Active Substance: GABAPENTIN
     Indication: Pain
     Dosage: 100 MG, QD
  14. FINASTERIDE [Concomitant]
     Active Substance: FINASTERIDE
     Indication: Alopecia
     Dosage: 5 MG
  15. ESTRADIOL [Concomitant]
     Active Substance: ESTRADIOL
     Indication: Hot flush
     Dosage: 2 DF, QW
     Route: 062
  16. KETOCONAZOLE [Concomitant]
     Active Substance: KETOCONAZOLE
     Indication: Alopecia
  17. ELIDEL [Concomitant]
     Active Substance: PIMECROLIMUS
     Indication: Psoriasis
     Dosage: 1 %
     Route: 061
  18. CALCIPOTRIENE [Concomitant]
     Active Substance: CALCIPOTRIENE
     Indication: Psoriasis
  19. METRONIDAZOLE [Concomitant]
     Active Substance: METRONIDAZOLE
     Indication: Rosacea
  20. DEBROX [CELECOXIB] [Concomitant]
  21. ASPIRIN [Concomitant]
     Active Substance: ASPIRIN
     Indication: Atrial septal defect
  22. DIETARY SUPPLEMENT [Concomitant]
     Active Substance: DIETARY SUPPLEMENT
     Indication: Blood triglycerides increased
     Dosage: 600 MG

REACTIONS (11)
  - Gastritis erosive [Not Recovered/Not Resolved]
  - Oesophageal motility disorder [Not Recovered/Not Resolved]
  - Eosinophil count increased [Unknown]
  - Injection site papule [Not Recovered/Not Resolved]
  - Psoriasis [Recovering/Resolving]
  - Dysphagia [Not Recovered/Not Resolved]
  - Nausea [Not Recovered/Not Resolved]
  - Injection site warmth [Not Recovered/Not Resolved]
  - Injection site erythema [Not Recovered/Not Resolved]
  - Injection site pruritus [Not Recovered/Not Resolved]
  - Off label use [Unknown]

NARRATIVE: CASE EVENT DATE: 20211201
